FAERS Safety Report 8597535-7 (Version None)
Quarter: 2012Q3

REPORT INFORMATION
  Report Type: 
  Country: None (occurrence: None)
  Receive Date: 20120816
  Receipt Date: 20120806
  Transmission Date: 20120928
  Serious: Yes (Hospitalization)
  Sender: FDA-Public Use
  Company Number: US-BAYER-2012-032822

PATIENT
  Age: 16 Year
  Sex: Female
  Weight: 52.154 kg

DRUGS (4)
  1. YAZ [Suspect]
  2. EFFEXOR [Concomitant]
     Indication: MIGRAINE
     Dosage: 1 PILL, QD
     Dates: start: 20080401
  3. YAZ [Suspect]
     Indication: MENSTRUATION IRREGULAR
  4. YAZ [Suspect]
     Indication: PREMENSTRUAL SYNDROME
     Dosage: UNK
     Dates: start: 20080128, end: 20090901

REACTIONS (12)
  - CHOLECYSTITIS ACUTE [None]
  - BILIARY DYSKINESIA [None]
  - GALLBLADDER DISORDER [None]
  - INJURY [None]
  - MURPHY'S SIGN POSITIVE [None]
  - HEPATOBILIARY SCAN ABNORMAL [None]
  - NAUSEA [None]
  - VOMITING [None]
  - GASTROINTESTINAL DISORDER [None]
  - GASTRIC ULCER [None]
  - ABDOMINAL PAIN [None]
  - PAIN [None]
